FAERS Safety Report 11748558 (Version 1)
Quarter: 2015Q4

REPORT INFORMATION
  Report Type: Spontaneous
  Country: FR (occurrence: FR)
  Receive Date: 20151117
  Receipt Date: 20151117
  Transmission Date: 20160304
  Serious: Yes (Hospitalization, Other)
  Sender: FDA-Public Use
  Company Number: FR-GILEAD-2015-0182277

PATIENT
  Age: 80 Year
  Sex: Male

DRUGS (2)
  1. ZYDELIG [Suspect]
     Active Substance: IDELALISIB
     Indication: CHRONIC LYMPHOCYTIC LEUKAEMIA
     Dosage: 150 MG, BID
     Route: 065
  2. RITUXIMAB [Concomitant]
     Active Substance: RITUXIMAB

REACTIONS (4)
  - Diarrhoea [Unknown]
  - Renal failure [Unknown]
  - Lung disorder [Unknown]
  - Dehydration [Unknown]
